FAERS Safety Report 9878230 (Version 1)
Quarter: 2014Q1

REPORT INFORMATION
  Report Type: Spontaneous
  Country: CA (occurrence: CA)
  Receive Date: 20140206
  Receipt Date: 20140206
  Transmission Date: 20141002
  Serious: Yes (Other)
  Sender: FDA-Public Use
  Company Number: CA-PFIZER INC-2014030996

PATIENT
  Sex: Male

DRUGS (1)
  1. ZOLOFT [Suspect]
     Dosage: UNK
     Dates: start: 1994

REACTIONS (2)
  - Parkinson^s disease [Unknown]
  - Drug effect decreased [Unknown]
